FAERS Safety Report 7961557-7 (Version None)
Quarter: 2011Q4

REPORT INFORMATION
  Report Type: 
  Country: None (occurrence: None)
  Receive Date: 20111207
  Receipt Date: 20111125
  Transmission Date: 20120403
  Serious: Yes (Other)
  Sender: FDA-Public Use
  Company Number: PHFR2011GB06024

PATIENT
  Sex: Male

DRUGS (5)
  1. CLOZARIL [Suspect]
     Indication: SCHIZOPHRENIA
     Dosage: UNK
     Route: 048
     Dates: start: 20110323
  2. METFORMIN HCL [Concomitant]
     Indication: DIABETES MELLITUS
     Dosage: 2 G/DAY
     Route: 048
     Dates: start: 20101209
  3. VALPROATE SODIUM [Concomitant]
     Indication: SCHIZOPHRENIA
     Dosage: 2.4 G/DAY
     Route: 048
     Dates: start: 20101209, end: 20111120
  4. CLOZARIL [Suspect]
     Dosage: 250 MG/DAY
     Route: 048
     Dates: start: 20110803, end: 20111120
  5. PIRENZEPINE [Concomitant]
     Indication: SALIVARY HYPERSECRETION
     Dosage: UNK
     Route: 048
     Dates: start: 20110729, end: 20111120

REACTIONS (8)
  - HYPERSOMNIA [None]
  - MALAISE [None]
  - HYPOTENSION [None]
  - HYPOPHAGIA [None]
  - DYSKINESIA [None]
  - PLATELET COUNT DECREASED [None]
  - TREMOR [None]
  - NEUTROPHIL COUNT DECREASED [None]
